FAERS Safety Report 5465620-4 (Version None)
Quarter: 2007Q3

REPORT INFORMATION
  Report Type: 
  Country: None (occurrence: None)
  Receive Date: 20070924
  Receipt Date: 20070917
  Transmission Date: 20080115
  Serious: Yes (Hospitalization, Other)
  Sender: FDA-Public Use
  Company Number: BR-AVENTIS-200718591GDDC

PATIENT
  Age: 37 Year
  Sex: Male
  Weight: 80 kg

DRUGS (5)
  1. LANTUS [Suspect]
     Route: 058
     Dates: start: 20050101
  2. LANTUS [Suspect]
     Route: 058
     Dates: start: 20050101
  3. OPTIPEN (INSULIN PUMP) [Suspect]
     Dates: start: 20050101
  4. SIMVASTATIN [Concomitant]
     Route: 048
     Dates: start: 20050101
  5. ASPIRINA PREVENT [Concomitant]
     Route: 048
     Dates: start: 20050101

REACTIONS (2)
  - DEPRESSION [None]
  - HYPOGLYCAEMIA [None]
